FAERS Safety Report 20760553 (Version 4)
Quarter: 2023Q1

REPORT INFORMATION
  Report Type: Other
  Country: AU (occurrence: AU)
  Receive Date: 20220428
  Receipt Date: 20230314
  Transmission Date: 20230418
  Serious: Yes (Hospitalization)
  Sender: FDA-Public Use
  Company Number: AU-TOLMAR, INC.-22AU032805

PATIENT
  Age: 74 Year
  Sex: Male

DRUGS (1)
  1. ELIGARD [Suspect]
     Active Substance: LEUPROLIDE ACETATE
     Indication: Prostate cancer
     Dosage: 22.5 MILLIGRAM, Q 3 MONTH
     Dates: start: 20211031

REACTIONS (9)
  - Chronic kidney disease [Unknown]
  - Kidney infection [Recovering/Resolving]
  - Pneumonia [Recovering/Resolving]
  - Intentional dose omission [Not Recovered/Not Resolved]
  - Localised infection [Unknown]
  - Dyspnoea exertional [Unknown]
  - Muscle atrophy [Not Recovered/Not Resolved]
  - Hot flush [Not Recovered/Not Resolved]
  - Hyperhidrosis [Not Recovered/Not Resolved]

NARRATIVE: CASE EVENT DATE: 20221107
